FAERS Safety Report 5495346-2 (Version None)
Quarter: 2007Q4

REPORT INFORMATION
  Report Type: 
  Country: None (occurrence: None)
  Receive Date: 20071024
  Receipt Date: 20071019
  Transmission Date: 20080405
  Serious: Yes (Hospitalization)
  Sender: FDA-Public Use
  Company Number: NO-MERCK-0710NOR00022

PATIENT
  Age: 81 Year
  Sex: Male
  Weight: 120 kg

DRUGS (7)
  1. PRINIVIL [Suspect]
     Route: 048
     Dates: start: 20060725, end: 20070901
  2. SIMVASTATIN [Concomitant]
     Route: 048
  3. METFORMIN [Suspect]
     Route: 048
     Dates: start: 20061012
  4. ATENOLOL [Concomitant]
     Route: 065
  5. FUROSEMIDE [Concomitant]
     Route: 048
  6. ASPIRIN AND MAGNESIUM OXIDE [Concomitant]
     Route: 048
  7. INSULIN HUMAN, ISOPHANE [Concomitant]
     Route: 048

REACTIONS (3)
  - DRUG INTERACTION [None]
  - METABOLIC ACIDOSIS [None]
  - RENAL FAILURE [None]
